FAERS Safety Report 6569633-0 (Version None)
Quarter: 2010Q1

REPORT INFORMATION
  Report Type: 
  Country: None (occurrence: None)
  Receive Date: 20100204
  Receipt Date: 20100126
  Transmission Date: 20100710
  Serious: Yes (Disabling)
  Sender: FDA-Public Use
  Company Number: CA-SANOFI-AVENTIS-2010SA004987

PATIENT
  Sex: Female

DRUGS (1)
  1. ARAVA [Suspect]
     Route: 048
     Dates: start: 20060701, end: 20080331

REACTIONS (9)
  - AGEUSIA [None]
  - ALOPECIA [None]
  - DYSKINESIA [None]
  - GLAUCOMA [None]
  - PNEUMONIA [None]
  - SKIN EXFOLIATION [None]
  - TEETH BRITTLE [None]
  - VISION BLURRED [None]
  - WEIGHT DECREASED [None]
